FAERS Safety Report 6305899-X (Version None)
Quarter: 2009Q3

REPORT INFORMATION
  Report Type: 
  Country: None (occurrence: None)
  Receive Date: 20090812
  Receipt Date: 20090810
  Transmission Date: 20100115
  Serious: Yes (Other)
  Sender: FDA-Public Use
  Company Number: JP-RB-016870-09

PATIENT
  Age: 29 Year
  Sex: Male

DRUGS (3)
  1. LEPETAN INJECTION [Suspect]
     Indication: DRUG USE FOR UNKNOWN INDICATION
     Route: 065
  2. LEPETAN INJECTION [Suspect]
     Route: 065
  3. LEPETAN INJECTION [Suspect]
     Route: 065

REACTIONS (4)
  - DEPENDENCE [None]
  - HALLUCINATION [None]
  - INSOMNIA [None]
  - LIMB DISCOMFORT [None]
